FAERS Safety Report 13069671 (Version 1)
Quarter: 2016Q4

REPORT INFORMATION
  Report Type: Spontaneous
  Country: FR (occurrence: FR)
  Receive Date: 20161228
  Receipt Date: 20161228
  Transmission Date: 20170207
  Serious: Yes (Hospitalization, Other)
  Sender: FDA-Public Use
  Company Number: FR-TEVA-724688ISR

PATIENT
  Age: 31 Year
  Sex: Male

DRUGS (11)
  1. LCI699 VS PLACEBO [Suspect]
     Active Substance: OSILODROSTAT
     Indication: PITUITARY-DEPENDENT CUSHING^S SYNDROME
     Dosage: NO TREATMENT (CODE NOT BROKEN)
     Route: 065
  2. LCI699 [Suspect]
     Active Substance: OSILODROSTAT
     Dosage: 20 MILLIGRAM DAILY;
     Route: 048
     Dates: start: 20150716, end: 20150727
  3. ROACCUTANE [Concomitant]
     Active Substance: ISOTRETINOIN
     Dates: start: 20150503, end: 20150805
  4. SORIATANE [Suspect]
     Active Substance: ACITRETIN
     Indication: HIDRADENITIS
     Dosage: 10 MILLIGRAM DAILY;
     Route: 065
     Dates: start: 20150806, end: 20150818
  5. LCI699 [Suspect]
     Active Substance: OSILODROSTAT
     Dosage: 5 MILLIGRAM DAILY;
     Route: 048
     Dates: start: 20150606, end: 20150615
  6. LCI699 [Suspect]
     Active Substance: OSILODROSTAT
     Dosage: 20 MILLIGRAM DAILY;
     Route: 048
     Dates: start: 20150701, end: 20150701
  7. LCI699 [Suspect]
     Active Substance: OSILODROSTAT
     Dosage: DAILY DOSE: 10MG+7MG
     Route: 048
     Dates: start: 20150831
  8. LCI699 [Suspect]
     Active Substance: OSILODROSTAT
     Indication: PITUITARY-DEPENDENT CUSHING^S SYNDROME
     Dosage: 2 MILLIGRAM DAILY;
     Route: 048
     Dates: start: 20150505, end: 20150605
  9. HUMIRA [Concomitant]
     Active Substance: ADALIMUMAB
     Dates: start: 20150819
  10. LCI699 [Suspect]
     Active Substance: OSILODROSTAT
     Dosage: 10 MILLIGRAM DAILY;
     Route: 048
     Dates: start: 20150616, end: 20150630
  11. LCI699 [Suspect]
     Active Substance: OSILODROSTAT
     Dosage: 10 MILLIGRAM DAILY;
     Route: 048
     Dates: start: 20150728, end: 20150830

REACTIONS (3)
  - Hidradenitis [Recovered/Resolved]
  - Hypercalcaemia [Recovered/Resolved]
  - Condition aggravated [None]

NARRATIVE: CASE EVENT DATE: 201506
